FAERS Safety Report 14983877 (Version 2)
Quarter: 2018Q2

REPORT INFORMATION
  Report Type: Spontaneous
  Country: JP (occurrence: JP)
  Receive Date: 20180607
  Receipt Date: 20180618
  Transmission Date: 20180711
  Serious: Yes (Hospitalization)
  Sender: FDA-Public Use
  Company Number: JP-ROCHE-2135763

PATIENT
  Age: 48 Year
  Sex: Male

DRUGS (3)
  1. LEVOFLOXACIN HEMIHYDRATE [Suspect]
     Active Substance: LEVOFLOXACIN
     Indication: PRODUCT USED FOR UNKNOWN INDICATION
     Dosage: DOSAGE IS UNCERTAIN.
     Route: 065
  2. LOXOPROFEN SODIUM HYDRATE [Suspect]
     Active Substance: LOXOPROFEN SODIUM DIHYDRATE
     Indication: PRODUCT USED FOR UNKNOWN INDICATION
     Route: 048
  3. ACTEMRA [Suspect]
     Active Substance: TOCILIZUMAB
     Indication: RHEUMATOID ARTHRITIS
     Dosage: DOSAGE IS UNCERTAIN.
     Route: 041

REACTIONS (11)
  - Pleural effusion [Unknown]
  - Acute kidney injury [Recovered/Resolved]
  - Sinusitis [Unknown]
  - Erythema [Unknown]
  - Pyrexia [Unknown]
  - Feeling hot [Unknown]
  - Drug hypersensitivity [Unknown]
  - Ascites [Unknown]
  - Skin abrasion [Unknown]
  - Streptococcal infection [Unknown]
  - Swelling [Unknown]

NARRATIVE: CASE EVENT DATE: 201510
